FAERS Safety Report 8118667-3 (Version None)
Quarter: 2012Q1

REPORT INFORMATION
  Report Type: 
  Country: None (occurrence: None)
  Receive Date: 20120202
  Receipt Date: 20120117
  Transmission Date: 20120608
  Serious: Yes (Hospitalization, Disabling, Other)
  Sender: FDA-Public Use
  Company Number: 1000026949

PATIENT
  Age: 69 Year
  Sex: Female

DRUGS (23)
  1. MEMANTINE HYDROCHLORIDE [Suspect]
     Indication: DEMENTIA ALZHEIMER'S TYPE
     Dosage: 20 MG (20 MG, 1 IN 1 D), ORAL
     Route: 048
     Dates: start: 20110830, end: 20111125
  2. MEMANTINE HYDROCHLORIDE [Suspect]
     Indication: DEMENTIA
     Dosage: 20 MG (20 MG, 1 IN 1 D), ORAL
     Route: 048
     Dates: start: 20110830, end: 20111125
  3. PANTOSIN (PANTETHINE) (PANTETHINE) [Concomitant]
  4. MIYA BM (CLOSTRIDIUM BUTYRICUM) (CLOSTRIDIUM BUTYRICUM) [Concomitant]
  5. MUCODYNE (CARBOCISTEINE) (CARBOCISTEINE) [Concomitant]
  6. MEMANTINE HYDROCHLORIDE [Suspect]
     Indication: DEMENTIA
     Dosage: 5 MG (5 MG, 1 IN 1 D), ORAL 10 MG (10 MG, 1 IN 1 D), ORAL 15 MG (15 MG, 1 IN 1 D), ORAL
     Route: 048
     Dates: start: 20110809, end: 20110801
  7. MEMANTINE HYDROCHLORIDE [Suspect]
     Indication: DEMENTIA ALZHEIMER'S TYPE
     Dosage: 5 MG (5 MG, 1 IN 1 D), ORAL 10 MG (10 MG, 1 IN 1 D), ORAL 15 MG (15 MG, 1 IN 1 D), ORAL
     Route: 048
     Dates: start: 20110809, end: 20110801
  8. MEMANTINE HYDROCHLORIDE [Suspect]
     Indication: DEMENTIA
     Dosage: 5 MG (5 MG, 1 IN 1 D), ORAL 10 MG (10 MG, 1 IN 1 D), ORAL 15 MG (15 MG, 1 IN 1 D), ORAL
     Route: 048
     Dates: start: 20110801, end: 20110801
  9. MEMANTINE HYDROCHLORIDE [Suspect]
     Indication: DEMENTIA ALZHEIMER'S TYPE
     Dosage: 5 MG (5 MG, 1 IN 1 D), ORAL 10 MG (10 MG, 1 IN 1 D), ORAL 15 MG (15 MG, 1 IN 1 D), ORAL
     Route: 048
     Dates: start: 20110801, end: 20110801
  10. MEMANTINE HYDROCHLORIDE [Suspect]
     Indication: DEMENTIA
     Dosage: 5 MG (5 MG, 1 IN 1 D), ORAL 10 MG (10 MG, 1 IN 1 D), ORAL 15 MG (15 MG, 1 IN 1 D), ORAL
     Route: 048
     Dates: start: 20110801, end: 20110829
  11. MEMANTINE HYDROCHLORIDE [Suspect]
     Indication: DEMENTIA ALZHEIMER'S TYPE
     Dosage: 5 MG (5 MG, 1 IN 1 D), ORAL 10 MG (10 MG, 1 IN 1 D), ORAL 15 MG (15 MG, 1 IN 1 D), ORAL
     Route: 048
     Dates: start: 20110801, end: 20110829
  12. ZOLPIDEM TARTRATE [Concomitant]
  13. ALFAROL (ALFACALCIDOL) (ALFACALCIDOL) [Concomitant]
  14. BENZALIN (NITRAZEPAM) (NITRAZEPAM) [Concomitant]
  15. PURSENNID (SENNA ALEXANDRINA LEAF) (SENNA ALEXANDRINA LEAF) [Concomitant]
  16. MEVAN (MEPIVACAINE) (MEPIVACAINE) [Concomitant]
  17. DESYREL (TRAZODONE HYDROCHLORIDE) (TRAZODONE HYDROCHLORIDE) [Concomitant]
  18. LAC-B (LACTOBACILLUS BIFIDUS, LYOPHILIZED) (POWDER) (LACTOBACILLUS BIF [Concomitant]
  19. SPIROPENT (CLENBUTEROL HYDROCHLORIDE) (CLENBUTEROL HYDROCHLORIDE) [Concomitant]
  20. STAYBLA (IMIDAFENACIN) (IMIDAFENACIN) [Concomitant]
  21. MUCOSTA (REBAMIPIDE) (REBAMIPIDE) [Concomitant]
  22. ARICEPT [Concomitant]
  23. POLYFUL (POLYCARBOPHIL CALCIUM) (POLYCARBOPHIL CALCIUM) [Concomitant]

REACTIONS (25)
  - TACHYCARDIA [None]
  - ACTIVITIES OF DAILY LIVING IMPAIRED [None]
  - CONVULSION [None]
  - MUTISM [None]
  - PARKINSONISM [None]
  - CONDITION AGGRAVATED [None]
  - ASPIRATION [None]
  - ABNORMAL BEHAVIOUR [None]
  - HYPERHIDROSIS [None]
  - DYSURIA [None]
  - INCONTINENCE [None]
  - POLLAKIURIA [None]
  - UPPER RESPIRATORY TRACT INFECTION [None]
  - MUSCLE RIGIDITY [None]
  - DECREASED ACTIVITY [None]
  - DYSPHAGIA [None]
  - DIZZINESS [None]
  - TREMOR [None]
  - DELIRIUM [None]
  - CHILLS [None]
  - MUSCULOSKELETAL STIFFNESS [None]
  - BLOOD CREATINE PHOSPHOKINASE INCREASED [None]
  - TOXICITY TO VARIOUS AGENTS [None]
  - GAIT DISTURBANCE [None]
  - URINARY TRACT INFECTION [None]
